FAERS Safety Report 14321579 (Version 4)
Quarter: 2018Q2

REPORT INFORMATION
  Report Type: Spontaneous
  Country: DE (occurrence: DE)
  Receive Date: 20171223
  Receipt Date: 20180605
  Transmission Date: 20180711
  Serious: Yes (Death, Other)
  Sender: FDA-Public Use
  Company Number: DE-MYLANLABS-2017M1081774

PATIENT
  Age: 41 Year
  Sex: Male

DRUGS (3)
  1. METHAMPHETAMINE [Concomitant]
     Active Substance: METHAMPHETAMINE
     Indication: PRODUCT USED FOR UNKNOWN INDICATION
  2. OLANZAPINE. [Suspect]
     Active Substance: OLANZAPINE
     Indication: PRODUCT USED FOR UNKNOWN INDICATION
     Dosage: UNK
  3. TRIMIPRAMINE [Interacting]
     Active Substance: TRIMIPRAMINE
     Indication: PRODUCT USED FOR UNKNOWN INDICATION
     Dosage: REGULAR MEDICATION

REACTIONS (12)
  - Coma [Fatal]
  - Toxicity to various agents [Fatal]
  - Pulmonary oedema [Unknown]
  - Aspiration [Fatal]
  - Skin haemorrhage [Unknown]
  - Visceral congestion [Unknown]
  - Brain oedema [Unknown]
  - Pulmonary haemorrhage [Unknown]
  - Drug interaction [Unknown]
  - Eyelid bleeding [Unknown]
  - Oxygen saturation decreased [Unknown]
  - Petechiae [Unknown]

NARRATIVE: CASE EVENT DATE: 201602
